FAERS Safety Report 9876855 (Version 2)
Quarter: 2017Q1

REPORT INFORMATION
  Report Type: Report from Study
  Country: GB (occurrence: GB)
  Receive Date: 20140206
  Receipt Date: 20170113
  Transmission Date: 20170429
  Serious: Yes (Other)
  Sender: FDA-Public Use
  Company Number: GB-ROCHE-1341847

PATIENT

DRUGS (3)
  1. CAPECITABINE. [Suspect]
     Active Substance: CAPECITABINE
     Indication: NEUROENDOCRINE TUMOUR
     Dosage: ON DAYS 1-21
     Route: 048
  2. CISPLATIN. [Suspect]
     Active Substance: CISPLATIN
     Indication: NEUROENDOCRINE TUMOUR
     Dosage: 2-H INFUSION IN NORMAL SALINE WITH HYDRATION ON DAY 1
     Route: 042
  3. STREPTOZOCIN [Suspect]
     Active Substance: STREPTOZOCIN
     Indication: NEUROENDOCRINE TUMOUR
     Dosage: 1.0 G/M2 (2-H INFUSION IN NORMAL SALINE) ON DAY 1.
     Route: 042

REACTIONS (14)
  - Neuropathy peripheral [Unknown]
  - Nephropathy toxic [Unknown]
  - Neutropenia [Unknown]
  - Anaemia [Unknown]
  - Haematotoxicity [Unknown]
  - Hepatotoxicity [Unknown]
  - Blood glucose abnormal [Unknown]
  - Diarrhoea [Unknown]
  - Nausea [Unknown]
  - Vomiting [Unknown]
  - Mucosal inflammation [Unknown]
  - Embolism [Unknown]
  - Palmar-plantar erythrodysaesthesia syndrome [Unknown]
  - Fatigue [Unknown]
